FAERS Safety Report 9290585 (Version 2)
Quarter: 2013Q3

REPORT INFORMATION
  Report Type: Spontaneous
  Country: NO (occurrence: NO)
  Receive Date: 20130515
  Receipt Date: 20130717
  Transmission Date: 20140515
  Serious: Yes (Other)
  Sender: FDA-Public Use
  Company Number: PHHY2013NO046454

PATIENT
  Age: 2 Year
  Sex: Female

DRUGS (16)
  1. TOBRAMYCIN [Suspect]
     Dosage: 75 MG, QD (7.5 MG PER/ KG X 01 )
  2. PROGRAF [Suspect]
     Indication: PROPHYLAXIS AGAINST TRANSPLANT REJECTION
     Dosage: DOSAGE ADJUSTED DURING TREATMENT
     Dates: start: 201209
  3. TITRALAC [Concomitant]
     Dates: start: 201209, end: 201212
  4. ALBYL-E [Concomitant]
  5. CAPTOPRIL [Concomitant]
     Dates: start: 201209, end: 201302
  6. CELLCEPT [Concomitant]
     Dates: start: 201209, end: 201302
  7. BACTRIM [Concomitant]
     Dates: start: 201209, end: 201303
  8. ETALPHA [Concomitant]
  9. AMPICILLIN [Concomitant]
     Dosage: USED FOR 10 DAYS
  10. ZOFRAN [Concomitant]
  11. CALCIUM CARBONATE [Concomitant]
  12. ARANESP [Concomitant]
  13. URSOFALK [Concomitant]
  14. PREDNISOLONE [Concomitant]
  15. VENOFER [Concomitant]
     Dates: start: 201209, end: 201303
  16. ZEMPLAR [Concomitant]

REACTIONS (2)
  - Deafness bilateral [Not Recovered/Not Resolved]
  - Hearing impaired [Unknown]
